FAERS Safety Report 13714472 (Version 9)
Quarter: 2021Q4

REPORT INFORMATION
  Report Type: Report from Study
  Country: AR (occurrence: AR)
  Receive Date: 20170704
  Receipt Date: 20211013
  Transmission Date: 20220304
  Serious: Yes (Hospitalization)
  Sender: FDA-Public Use
  Company Number: PHHY2017AR097162

PATIENT
  Age: 50 Year
  Sex: Male

DRUGS (6)
  1. COSENTYX [Suspect]
     Active Substance: SECUKINUMAB
     Indication: Psoriatic arthropathy
     Dosage: 150 MG, QMO
     Route: 065
     Dates: start: 20170307
  2. COSENTYX [Suspect]
     Active Substance: SECUKINUMAB
     Indication: Psoriasis
     Dosage: 150 MG, UNKNOWN
     Route: 065
     Dates: start: 20170619
  3. COSENTYX [Suspect]
     Active Substance: SECUKINUMAB
     Dosage: 300 MG, UNKNOWN
     Route: 065
     Dates: start: 20191022
  4. COSENTYX [Suspect]
     Active Substance: SECUKINUMAB
     Dosage: 150 MG, QMO
     Route: 065
     Dates: start: 201911
  5. COSENTYX [Suspect]
     Active Substance: SECUKINUMAB
     Dosage: 300 MG, QMO
     Route: 058
  6. TRAMADOL [Concomitant]
     Active Substance: TRAMADOL
     Indication: Sleep disorder
     Dosage: UNK UNK, QHS (DROPS)
     Route: 065
     Dates: start: 201702

REACTIONS (8)
  - Ependymoma benign [Recovering/Resolving]
  - Pain in extremity [Not Recovered/Not Resolved]
  - Pain [Unknown]
  - Malaise [Recovering/Resolving]
  - Fall [Unknown]
  - Joint injury [Unknown]
  - Myalgia [Unknown]
  - Inappropriate schedule of product administration [Not Recovered/Not Resolved]

NARRATIVE: CASE EVENT DATE: 20191101
